FAERS Safety Report 7978157-5 (Version None)
Quarter: 2011Q4

REPORT INFORMATION
  Report Type: 
  Country: None (occurrence: None)
  Receive Date: 20111214
  Receipt Date: 20111206
  Transmission Date: 20120403
  Serious: Yes (Other)
  Sender: FDA-Public Use
  Company Number: CA-CELGENEUS-028-21880-11120813

PATIENT
  Sex: Male

DRUGS (9)
  1. AVODART [Concomitant]
     Route: 065
  2. CRESTOR [Concomitant]
     Route: 065
  3. REVLIMID [Suspect]
     Indication: MULTIPLE MYELOMA
     Dosage: 20 MILLIGRAM
     Route: 048
     Dates: start: 20100121
  4. GLICLAZIDE [Concomitant]
     Route: 065
  5. METFORMIN HCL [Concomitant]
     Route: 065
  6. RAMIPRIL [Concomitant]
     Route: 065
  7. PRADAXA [Concomitant]
     Route: 065
  8. DEXAMETHASONE [Concomitant]
     Route: 065
  9. FLOMAX [Concomitant]
     Route: 065

REACTIONS (2)
  - HAEMORRHAGE [None]
  - CEREBROVASCULAR ACCIDENT [None]
